FAERS Safety Report 21002176 (Version 1)
Quarter: 2022Q2

REPORT INFORMATION
  Report Type: Report from Study
  Country: IT (occurrence: IT)
  Receive Date: 20220624
  Receipt Date: 20220624
  Transmission Date: 20220721
  Serious: Yes (Other)
  Sender: FDA-Public Use
  Company Number: None

PATIENT
  Age: 48 Year
  Sex: Female

DRUGS (1)
  1. CETIRIZINE [Suspect]
     Active Substance: CETIRIZINE HYDROCHLORIDE
     Indication: Hypersensitivity
     Dates: start: 20220503, end: 20220503

REACTIONS (3)
  - Palpitations [Recovering/Resolving]
  - Hypertensive crisis [Recovering/Resolving]
  - Vertigo CNS origin [Recovering/Resolving]

NARRATIVE: CASE EVENT DATE: 20220504
